FAERS Safety Report 20364079 (Version 3)
Quarter: 2022Q2

REPORT INFORMATION
  Report Type: Report from Study
  Country: US (occurrence: US)
  Receive Date: 20220121
  Receipt Date: 20220520
  Transmission Date: 20220721
  Serious: Yes (Other)
  Sender: FDA-Public Use
  Company Number: US-UCBSA-2022002558

PATIENT
  Sex: Female

DRUGS (1)
  1. ROTIGOTINE [Suspect]
     Active Substance: ROTIGOTINE
     Indication: Parkinson^s disease
     Dosage: 4 MILLIGRAM, ONCE DAILY (QD)

REACTIONS (6)
  - Renal cancer [Not Recovered/Not Resolved]
  - Aphonia [Not Recovered/Not Resolved]
  - Pruritus [Recovered/Resolved]
  - Circadian rhythm sleep disorder [Unknown]
  - Constipation [Unknown]
  - Product adhesion issue [Unknown]
